FAERS Safety Report 15462119 (Version 1)
Quarter: 2018Q4

REPORT INFORMATION
  Report Type: Spontaneous
  Country: FR (occurrence: FR)
  Receive Date: 20181004
  Receipt Date: 20181004
  Transmission Date: 20190204
  Serious: Yes (Congenital Anomaly)
  Sender: FDA-Public Use
  Company Number: FR-BIOGEN-2018BI00638444

PATIENT
  Age: 0 Day
  Sex: Male

DRUGS (1)
  1. AVONEX [Suspect]
     Active Substance: INTERFERON BETA-1A
     Indication: MATERNAL EXPOSURE TIMING UNSPECIFIED
     Route: 064
     Dates: start: 20171108, end: 20171129

REACTIONS (2)
  - Foetal exposure during pregnancy [Recovered/Resolved]
  - Ductus venosus agenesis [Not Recovered/Not Resolved]

NARRATIVE: CASE EVENT DATE: 20180703
